FAERS Safety Report 5325347-6 (Version None)
Quarter: 2007Q2

REPORT INFORMATION
  Report Type: 
  Country: None (occurrence: None)
  Receive Date: 20070509
  Receipt Date: 20070423
  Transmission Date: 20071010
  Serious: Yes (Other)
  Sender: FDA-Public Use
  Company Number: 2006RR-04549

PATIENT
  Age: 31 Year
  Sex: Female

DRUGS (4)
  1. SERTRALINE [Suspect]
     Dosage: SEE IMAGE
  2. SERTRALINE [Suspect]
     Dosage: SEE IMAGE
  3. PAROXETINE [Suspect]
     Indication: DEPRESSION
     Dosage: 20 MG, QD, ORAL
     Route: 048
  4. ALPRAZOLAM [Concomitant]

REACTIONS (10)
  - AGITATION [None]
  - ALCOHOL POISONING [None]
  - COMPULSIONS [None]
  - DEPRESSION [None]
  - HOMICIDE [None]
  - INTENTIONAL OVERDOSE [None]
  - RESTLESSNESS [None]
  - SUICIDAL IDEATION [None]
  - SUICIDE ATTEMPT [None]
  - TENSION [None]
